FAERS Safety Report 10012019 (Version 1)
Quarter: 2014Q1

REPORT INFORMATION
  Report Type: Spontaneous
  Country: CH (occurrence: CH)
  Receive Date: 20140314
  Receipt Date: 20140314
  Transmission Date: 20141002
  Serious: Yes (Hospitalization, Other)
  Sender: FDA-Public Use
  Company Number: CH-ACTAVIS-2014-04564

PATIENT
  Age: 67 Year
  Sex: Female

DRUGS (2)
  1. CALCIUM CARBONATE [Suspect]
     Indication: OSTEOPOROSIS
     Dosage: UNKNOWN
     Route: 048
  2. MORPHINE (UNKNOWN) [Suspect]
     Indication: BACK PAIN
     Dosage: UNKNOWN
     Route: 037

REACTIONS (5)
  - Milk-alkali syndrome [Recovered/Resolved]
  - Mental status changes [Recovered/Resolved]
  - Vomiting [Unknown]
  - Nausea [Unknown]
  - Overdose [Unknown]
